FAERS Safety Report 15410354 (Version 4)
Quarter: 2019Q1

REPORT INFORMATION
  Report Type: Spontaneous
  Country: US (occurrence: US)
  Receive Date: 20180921
  Receipt Date: 20190130
  Transmission Date: 20190417
  Serious: Yes (Hospitalization)
  Sender: FDA-Public Use
  Company Number: US-ROCHE-2186401

PATIENT
  Age: 63 Year
  Sex: Male

DRUGS (9)
  1. RITONAVIR. [Concomitant]
     Active Substance: RITONAVIR
  2. SPIRIVA [Concomitant]
     Active Substance: TIOTROPIUM BROMIDE MONOHYDRATE
  3. DEPAKOTE [Concomitant]
     Active Substance: DIVALPROEX SODIUM
  4. ALPRAZOLAM. [Concomitant]
     Active Substance: ALPRAZOLAM
  5. CYCLOBENZAPRINE. [Concomitant]
     Active Substance: CYCLOBENZAPRINE
  6. IPRATROPIUM [Concomitant]
     Active Substance: IPRATROPIUM
  7. PREZISTA [Concomitant]
     Active Substance: DARUNAVIR ETHANOLATE
  8. SERTRALINE [Concomitant]
     Active Substance: SERTRALINE HYDROCHLORIDE
  9. ERIVEDGE [Suspect]
     Active Substance: VISMODEGIB
     Indication: CARCINOID TUMOUR
     Route: 048
     Dates: start: 20180202

REACTIONS (3)
  - Bronchitis [Unknown]
  - Off label use [Unknown]
  - Intentional product use issue [Unknown]

NARRATIVE: CASE EVENT DATE: 20180914
